FAERS Safety Report 9664728 (Version 1)
Quarter: 2013Q4

REPORT INFORMATION
  Report Type: Spontaneous
  Country: IN (occurrence: None)
  Receive Date: 20131031
  Receipt Date: 20131031
  Transmission Date: 20140711
  Serious: Yes (Hospitalization)
  Sender: FDA-Public Use
  Company Number: POI0581201300010

PATIENT
  Age: 42 Year
  Sex: Female

DRUGS (2)
  1. AZATHIOPRINE [Suspect]
     Indication: PEMPHIGUS
     Dosage: 50 MG, 1 IN 1 D
     Route: 048
     Dates: start: 2012, end: 2012
  2. PREDNISOLONE [Concomitant]

REACTIONS (3)
  - Skin ulcer [None]
  - Pneumonia klebsiella [None]
  - Neutropenia [None]
